FAERS Safety Report 14155966 (Version 5)
Quarter: 2018Q3

REPORT INFORMATION
  Report Type: Spontaneous
  Country: US (occurrence: US)
  Receive Date: 20171103
  Receipt Date: 20180705
  Transmission Date: 20181010
  Serious: Yes (Death, Life-Threatening, Hospitalization, Other)
  Sender: FDA-Public Use
  Company Number: US-PFIZER INC-2017475651

PATIENT
  Age: 85 Year
  Sex: Male
  Weight: 77 kg

DRUGS (25)
  1. TYLENOL [Concomitant]
     Active Substance: ACETAMINOPHEN
     Dosage: 500 MG, AS NEEDED
     Route: 048
  2. GLIPIZIDE. [Concomitant]
     Active Substance: GLIPIZIDE
     Dosage: 7.5 MG, 2.5 MG X^S 3 TABS WITH BREAKFAST
     Route: 048
  3. HYDROCHLOROTHIAZIDE. [Concomitant]
     Active Substance: HYDROCHLOROTHIAZIDE
     Dosage: 12.5 MG (0.5 TAB), DAILY
     Route: 048
  4. XARELTO [Concomitant]
     Active Substance: RIVAROXABAN
     Dosage: 15 MG, 2X/DAY (WITH MEALS)
     Route: 048
  5. ELIQUIS [Concomitant]
     Active Substance: APIXABAN
     Dosage: 5 MG, TWICE DAILY
     Route: 048
  6. INSULIN GLARGINE [Concomitant]
     Active Substance: INSULIN GLARGINE
     Dosage: 30 IU, DAILY
     Route: 058
  7. ASCORBIC ACID. [Concomitant]
     Active Substance: ASCORBIC ACID
     Dosage: 500 MG, DAILY
     Route: 048
  8. NORVASC [Concomitant]
     Active Substance: AMLODIPINE BESYLATE
     Dosage: 5 MG, DAILY
     Route: 048
  9. AMLODIPINE [Concomitant]
     Active Substance: AMLODIPINE BESYLATE
     Dosage: 5 MG, DAILY
  10. MAGNESIUM OXIDE. [Concomitant]
     Active Substance: MAGNESIUM OXIDE
     Dosage: 400 MG, DAILY
     Route: 048
  11. ONDANSETRON [Concomitant]
     Active Substance: ONDANSETRON
     Dosage: 4 MG, AS NEEDED (EVERY 12 HOURS, AS NEEDED)
  12. XALKORI [Suspect]
     Active Substance: CRIZOTINIB
     Indication: NON-SMALL CELL LUNG CANCER
     Dosage: 250 MG, 2X/DAY
     Route: 048
     Dates: start: 20170920, end: 20170924
  13. LYRICA [Suspect]
     Active Substance: PREGABALIN
     Dosage: UNK
  14. INSULIN GLARGINE [Concomitant]
     Active Substance: INSULIN GLARGINE
     Dosage: 25 IU, DAILY
     Route: 058
  15. IRON POLYSACCHARIDE [Concomitant]
     Dosage: 150 MG, DAILY
     Route: 048
  16. ENALAPRIL [Concomitant]
     Active Substance: ENALAPRIL
     Dosage: 20 MG, TWICE DAILY
     Route: 048
  17. AUGMENTIN [Concomitant]
     Active Substance: AMOXICILLIN\CLAVULANATE POTASSIUM
     Dosage: 125 MG, 2X/DAY(EVERY 12 HOURS)
     Route: 048
  18. DUONEB [Concomitant]
     Active Substance: ALBUTEROL SULFATE\IPRATROPIUM BROMIDE
     Dosage: 0.5 MG?2.5 MG/3 ML INHALATION SOLUTION 3 ML, 4X.DAY
  19. LANTUS [Concomitant]
     Active Substance: INSULIN GLARGINE
     Dosage: 25 IU, DAILY
     Route: 058
  20. ASPIRIN. [Concomitant]
     Active Substance: ASPIRIN
     Dosage: 325 MG, DAILY
     Route: 048
  21. MEGACE [Concomitant]
     Active Substance: MEGESTROL ACETATE
     Dosage: 20 ML, DAILY (800 MG: 20 ML)
     Route: 048
  22. TRAMADOL. [Concomitant]
     Active Substance: TRAMADOL
     Dosage: 50 MG, AS NEEDED (EVERY 6 HOURS AS NEEDED)
     Route: 048
  23. PREDNISONE. [Concomitant]
     Active Substance: PREDNISONE
     Dosage: 20 MG, DAILY
     Route: 048
  24. ZOFRAN [Concomitant]
     Active Substance: ONDANSETRON HYDROCHLORIDE
     Dosage: 4 MG, AS NEEDED EVERY 12 HOURS)
     Route: 048
  25. METOPROLOL. [Concomitant]
     Active Substance: METOPROLOL
     Dosage: 75 MG, DAILY (1.5 TABS)
     Route: 048

REACTIONS (32)
  - Respiratory failure [Unknown]
  - Diplopia [Unknown]
  - Diarrhoea [Unknown]
  - Acute kidney injury [Unknown]
  - Eye disorder [Unknown]
  - Vomiting [Recovered/Resolved]
  - Pneumonia [Fatal]
  - Nausea [Unknown]
  - Delirium [Recovered/Resolved]
  - Dehydration [Unknown]
  - Renal disorder [Unknown]
  - Confusional state [Unknown]
  - Anxiety [Unknown]
  - Faeces discoloured [Recovered/Resolved]
  - Malnutrition [Unknown]
  - Neoplasm progression [Fatal]
  - Hypoxia [Recovered/Resolved]
  - Neutrophilia [Unknown]
  - Upper limb fracture [Unknown]
  - Dyspnoea [Recovering/Resolving]
  - Asthenia [Unknown]
  - Platelet count decreased [Unknown]
  - Wheezing [Unknown]
  - Visual impairment [Unknown]
  - Musculoskeletal pain [Unknown]
  - Depression [Unknown]
  - Melaena [Unknown]
  - Gastrointestinal haemorrhage [Unknown]
  - Thrombocytopenia [Unknown]
  - Gastritis [Recovered/Resolved]
  - Abdominal pain [Unknown]
  - Decreased appetite [Unknown]

NARRATIVE: CASE EVENT DATE: 20170920
